FAERS Safety Report 7651990-5 (Version None)
Quarter: 2011Q3

REPORT INFORMATION
  Report Type: 
  Country: None (occurrence: None)
  Receive Date: 20110803
  Receipt Date: 20110725
  Transmission Date: 20111222
  Serious: No
  Sender: FDA-Public Use
  Company Number: US-BIOGENIDEC-2011BI027864

PATIENT
  Sex: Female

DRUGS (2)
  1. TYSABRI [Suspect]
     Indication: MULTIPLE SCLEROSIS
     Route: 042
     Dates: start: 20070911
  2. STARTS WITH A ^T^ (NOS) [Concomitant]
     Indication: PROPHYLAXIS
     Dates: end: 20110101

REACTIONS (4)
  - ASTHENIA [None]
  - CATHETER PLACEMENT [None]
  - PNEUMONIA [None]
  - URINARY TRACT INFECTION [None]
